FAERS Safety Report 8557617-2 (Version None)
Quarter: 2012Q3

REPORT INFORMATION
  Report Type: 
  Country: None (occurrence: None)
  Receive Date: 20120801
  Receipt Date: 20120719
  Transmission Date: 20120928
  Serious: Yes (Death)
  Sender: FDA-Public Use
  Company Number: US-MYLANLABS-2011S1008316

PATIENT
  Age: 43 Year
  Sex: Female
  Weight: 111.4 kg

DRUGS (18)
  1. HYDROCODONE [Suspect]
     Indication: PAIN
     Dosage: 10MG/325MG; ONE EVERY 4-5 HOURS AS NEEDED WITH A MAX OF 5 PER DAY
     Route: 048
  2. TIZANIDINE HYDROCHLORIDE [Concomitant]
     Indication: MUSCLE SPASMS
  3. GABAPENTIN [Concomitant]
     Indication: NEURALGIA
     Dosage: ONE - THREE TIMES PER DAY
  4. LISINOPRIL AND HYDROCHLOROTHIAZIDE [Concomitant]
     Indication: HYPERTENSION
     Dosage: 20MG/25MG
  5. LASIX [Concomitant]
     Indication: FLUID RETENTION
     Route: 048
  6. PROMETHAZINE [Concomitant]
     Indication: NAUSEA
     Dosage: EVERY 8 HOURS AS NEEDED
     Route: 048
  7. KLONOPIN [Concomitant]
     Indication: ANXIETY
  8. AMITIZA [Concomitant]
     Dosage: SAMPLE BOX WITN NO NAME OR DOCTOR FOUND WITH OTHER MEDICATIONS
  9. ATENOLOL [Concomitant]
     Indication: BLOOD PRESSURE INCREASED
  10. TRAZODONE HYDROCHLORIDE [Concomitant]
  11. LIDOCAINE [Concomitant]
     Dosage: ON 12 HOURS OFF 12 HOURS
     Route: 062
  12. AMITRIPTLINE HYDROCHLORIDE TAB [Concomitant]
  13. NABUMETONE [Concomitant]
     Indication: PAIN
     Dosage: 1 -2  PER DAY
  14. PREVACID [Concomitant]
     Indication: DYSPEPSIA
  15. ZOLPIDEM TARTRATE [Concomitant]
     Indication: INSOMNIA
     Route: 048
  16. FLUOXETINE HCL [Concomitant]
     Indication: DEPRESSION
  17. FENTANYL [Suspect]
     Indication: PAIN
     Route: 062
     Dates: start: 20090201, end: 20090409
  18. SUMATRIPTAN SUCCINATE [Concomitant]
     Indication: HEADACHE
     Route: 048

REACTIONS (3)
  - OVERDOSE [None]
  - TOXICITY TO VARIOUS AGENTS [None]
  - SYNCOPE [None]
